FAERS Safety Report 7295178-9 (Version None)
Quarter: 2011Q1

REPORT INFORMATION
  Report Type: 
  Country: None (occurrence: None)
  Receive Date: 20110216
  Receipt Date: 20101110
  Transmission Date: 20110831
  Serious: Yes (Other)
  Sender: FDA-Public Use
  Company Number: A0891837A

PATIENT
  Age: 70 Year
  Sex: Female

DRUGS (4)
  1. VOTRIENT [Suspect]
     Indication: RENAL CANCER
     Route: 048
     Dates: start: 20100826
  2. SYNTHROID [Concomitant]
  3. RAMIPRIL [Concomitant]
  4. DIOVAN [Concomitant]

REACTIONS (6)
  - ALOPECIA [None]
  - HEPATIC ENZYME INCREASED [None]
  - DIARRHOEA [None]
  - ASPARTATE AMINOTRANSFERASE INCREASED [None]
  - NAUSEA [None]
  - ALANINE AMINOTRANSFERASE INCREASED [None]
